FAERS Safety Report 23677189 (Version 1)
Quarter: 2024Q1

REPORT INFORMATION
  Report Type: Spontaneous
  Country: CN (occurrence: CN)
  Receive Date: 20240327
  Receipt Date: 20240327
  Transmission Date: 20240410
  Serious: Yes (Other)
  Sender: FDA-Public Use
  Company Number: CN-BoehringerIngelheim-2024-BI-015444

PATIENT
  Age: 67 Year
  Sex: Female

DRUGS (10)
  1. ALTEPLASE [Suspect]
     Active Substance: ALTEPLASE
     Indication: Thrombolysis
     Dosage: FOR 1 MINUTE
     Route: 040
     Dates: start: 20240305, end: 20240305
  2. ALTEPLASE [Suspect]
     Active Substance: ALTEPLASE
     Dosage: 45 ML/H
     Route: 040
     Dates: start: 20240305, end: 20240305
  3. URAPIDIL [Concomitant]
     Active Substance: URAPIDIL
     Indication: Reduction of increased intracranial pressure
     Dosage: VIA PUMPING AT 10 ML/H
     Route: 042
     Dates: start: 20240305, end: 20240305
  4. URAPIDIL [Concomitant]
     Active Substance: URAPIDIL
     Dosage: VIA PUMPING AT 2 ML/H
     Route: 042
     Dates: start: 20240305, end: 20240305
  5. URAPIDIL [Concomitant]
     Active Substance: URAPIDIL
     Dosage: PUMPED AT A RATE OF 6 ML/H
     Route: 042
     Dates: start: 20240305, end: 20240305
  6. URAPIDIL [Concomitant]
     Active Substance: URAPIDIL
     Dosage: 5ML IV BOLUS
     Route: 042
     Dates: start: 20240305, end: 20240305
  7. URAPIDIL [Concomitant]
     Active Substance: URAPIDIL
     Dosage: PUMPED AT A SPEED OF 10 ML/H
     Route: 042
     Dates: start: 20240305, end: 20240305
  8. SODIUM CHLORIDE [Concomitant]
     Active Substance: SODIUM CHLORIDE
     Indication: Drug therapy
     Route: 042
     Dates: start: 20240305, end: 20240305
  9. DEXTROSE [Concomitant]
     Active Substance: DEXTROSE\DEXTROSE MONOHYDRATE
     Indication: Drug therapy
     Route: 042
     Dates: start: 20240305, end: 20240305
  10. GINKGO BILOBA LEAF EXTRACT [Concomitant]
     Active Substance: GINKGO BILOBA LEAF EXTRACT
     Indication: Drug therapy
     Route: 041
     Dates: start: 20240305, end: 20240305

REACTIONS (4)
  - Oedema mouth [Unknown]
  - Gingival bleeding [Unknown]
  - Mouth haemorrhage [Unknown]
  - Off label use [Unknown]

NARRATIVE: CASE EVENT DATE: 20240305
